FAERS Safety Report 23501898 (Version 1)
Quarter: 2024Q1

REPORT INFORMATION
  Report Type: Spontaneous
  Country: US (occurrence: US)
  Receive Date: 20240208
  Receipt Date: 20240208
  Transmission Date: 20240410
  Serious: Yes (Other)
  Sender: FDA-Public Use
  Company Number: US-PFIZER INC-202400034916

PATIENT
  Sex: Male

DRUGS (1)
  1. GLASDEGIB [Suspect]
     Active Substance: GLASDEGIB
     Indication: Acute myeloid leukaemia
     Dosage: UNK

REACTIONS (1)
  - Thrombocytopenia [Recovered/Resolved]
